FAERS Safety Report 6429488-1 (Version None)
Quarter: 2009Q4

REPORT INFORMATION
  Report Type: 
  Country: None (occurrence: None)
  Receive Date: 20091105
  Receipt Date: 20090924
  Transmission Date: 20100525
  Serious: No
  Sender: FDA-Public Use
  Company Number: US-ABBOTT-09P-163-0599792-00

PATIENT
  Sex: Male
  Weight: 95.34 kg

DRUGS (1)
  1. KALETRA [Suspect]
     Indication: HIV INFECTION
     Route: 048
     Dates: start: 20090701

REACTIONS (4)
  - ASTHENIA [None]
  - MUSCLE RUPTURE [None]
  - NAUSEA [None]
  - SLUGGISHNESS [None]
